FAERS Safety Report 4896533-4 (Version None)
Quarter: 2006Q1

REPORT INFORMATION
  Report Type: 
  Country: None (occurrence: None)
  Receive Date: 20060131
  Receipt Date: 20060124
  Transmission Date: 20060701
  Serious: Yes (Hospitalization)
  Sender: FDA-Public Use
  Company Number: JP-JPN-A200600310

PATIENT
  Sex: Male

DRUGS (10)
  1. VALTREX [Suspect]
     Indication: HERPES ZOSTER
     Dosage: 1000MG PER DAY
     Route: 048
     Dates: start: 20050601
  2. SALIGREN [Concomitant]
     Route: 048
  3. ARTIST [Concomitant]
     Dosage: 2.5MG PER DAY
     Route: 048
  4. CAPTOPRIL [Concomitant]
     Dosage: 12.5MG PER DAY
     Route: 048
  5. ONON [Concomitant]
     Route: 048
  6. RENAGEL [Concomitant]
     Route: 048
  7. DIGOXIN [Concomitant]
     Dosage: .125MG TWO TIMES PER WEEK
     Route: 048
  8. KENTAN [Concomitant]
     Indication: HERPES ZOSTER
     Dosage: 1TAB TWICE PER DAY
     Route: 048
  9. OXAROL [Concomitant]
     Route: 065
  10. ARASENA-A [Concomitant]
     Indication: HERPES ZOSTER
     Route: 061
     Dates: start: 20050601

REACTIONS (12)
  - BLOOD CREATININE INCREASED [None]
  - BLOOD POTASSIUM INCREASED [None]
  - BLOOD UREA INCREASED [None]
  - BLOOD URIC ACID INCREASED [None]
  - DEPRESSED LEVEL OF CONSCIOUSNESS [None]
  - DYSARTHRIA [None]
  - HALLUCINATION, AUDITORY [None]
  - HYPERKINESIA [None]
  - LOGORRHOEA [None]
  - NAUSEA [None]
  - NEUTROPHIL COUNT INCREASED [None]
  - RESTLESSNESS [None]
